FAERS Safety Report 7382247 (Version 3)
Quarter: 2015Q4

REPORT INFORMATION
  Report Type: Spontaneous
  Country: US (occurrence: US)
  Receive Date: 20100510
  Receipt Date: 20151222
  Transmission Date: 20160305
  Serious: Yes (Hospitalization, Other)
  Sender: FDA-Public Use
  Company Number: US-BAYER-201021278NA

PATIENT
  Age: 33 Year
  Sex: Female
  Weight: 100 kg

DRUGS (6)
  1. YASMIN [Suspect]
     Active Substance: DROSPIRENONE\ETHINYL ESTRADIOL
     Indication: MENSTRUATION IRREGULAR
     Dosage: ONE TABLET WAS TAKEN DAILY
     Route: 048
     Dates: start: 200701, end: 20080415
  2. OMACOR [Concomitant]
     Active Substance: OMEGA-3-ACID ETHYL ESTERS
     Indication: HYPERLIPIDAEMIA
  3. ADVIL [Concomitant]
     Active Substance: IBUPROFEN
  4. HUMALOG [Concomitant]
     Active Substance: INSULIN LISPRO
  5. LANTUS [Concomitant]
     Active Substance: INSULIN GLARGINE
  6. YASMIN [Suspect]
     Active Substance: DROSPIRENONE\ETHINYL ESTRADIOL
     Indication: CONTRACEPTION

REACTIONS (10)
  - Embolism arterial [None]
  - Skin discolouration [None]
  - Gangrene [None]
  - Peripheral arterial occlusive disease [None]
  - Pain in extremity [None]
  - Muscle spasms [None]
  - Intermittent claudication [None]
  - Peripheral artery thrombosis [Recovering/Resolving]
  - Peripheral embolism [None]
  - Peripheral ischaemia [Recovering/Resolving]

NARRATIVE: CASE EVENT DATE: 200804
